FAERS Safety Report 6018592-8 (Version None)
Quarter: 2008Q4

REPORT INFORMATION
  Report Type: 
  Country: None (occurrence: None)
  Receive Date: 20081223
  Receipt Date: 20081215
  Transmission Date: 20090506
  Serious: Yes (Hospitalization)
  Sender: FDA-Public Use
  Company Number: US-ROXANE LABORATORIES, INC.-2008-RO-00428RO

PATIENT
  Age: 11 Year
  Sex: Female

DRUGS (7)
  1. AZATHIOPRINE [Suspect]
     Indication: CROHN'S DISEASE
  2. METRONIDAZOLE [Suspect]
     Indication: CROHN'S DISEASE
  3. METHYLPREDNISOLONE 16MG TAB [Suspect]
     Indication: CROHN'S DISEASE
  4. BROAD SPECTRUM ANTIBIOTICS [Concomitant]
     Indication: CROHN'S DISEASE
  5. METRONIDAZOLE [Concomitant]
     Indication: EOSINOPHILIC PNEUMONIA
  6. AMOXICILLIN + CLAVULANATE POTASSIUM [Concomitant]
     Indication: EOSINOPHILIC PNEUMONIA
  7. MESALAMINE [Concomitant]
     Indication: EOSINOPHILIC PNEUMONIA

REACTIONS (1)
  - EOSINOPHILIC PNEUMONIA [None]
